FAERS Safety Report 4828450-X (Version None)
Quarter: 2005Q4

REPORT INFORMATION
  Report Type: 
  Country: None (occurrence: None)
  Receive Date: 20051115
  Receipt Date: 20051031
  Transmission Date: 20060501
  Serious: Yes (Hospitalization)
  Sender: FDA-Public Use
  Company Number: US-JNJFOC-20051100906

PATIENT
  Age: 21 Month
  Sex: Female
  Weight: 9.3 kg

DRUGS (2)
  1. TYLENOL (CAPLET) [Suspect]
     Route: 048
  2. TYLENOL (CAPLET) [Suspect]
     Indication: DRUG USE FOR UNKNOWN INDICATION
     Dosage: APPROXIMATELY 2700 MG PO  DURATION (}8 HR {=24 HR)
     Route: 048

REACTIONS (4)
  - ACCIDENTAL OVERDOSE [None]
  - INCORRECT DOSE ADMINISTERED [None]
  - INCORRECT DRUG DOSAGE FORM ADMINISTERED [None]
  - PYREXIA [None]
